FAERS Safety Report 9467660 (Version 1)
Quarter: 2013Q3

REPORT INFORMATION
  Report Type: Spontaneous
  Country: US (occurrence: US)
  Receive Date: 20130821
  Receipt Date: 20130821
  Transmission Date: 20140515
  Serious: No
  Sender: FDA-Public Use
  Company Number: US-JNJFOC-20130801715

PATIENT
  Sex: Female

DRUGS (3)
  1. INVEGA SUSTENNA [Suspect]
     Indication: SCHIZOPHRENIA
     Dosage: INITIATION DOSE
     Route: 030
  2. INVEGA SUSTENNA [Suspect]
     Indication: SCHIZOPHRENIA
     Dosage: INITIATION DOSE
     Route: 030
  3. INVEGA SUSTENNA [Suspect]
     Indication: SCHIZOPHRENIA
     Dosage: FIRST MONTHLY DOSE
     Route: 030

REACTIONS (2)
  - Galactorrhoea [Recovered/Resolved]
  - Drug ineffective [Unknown]
